FAERS Safety Report 11646891 (Version 1)
Quarter: 2015Q4

REPORT INFORMATION
  Report Type: Spontaneous
  Country: US (occurrence: US)
  Receive Date: 20151020
  Receipt Date: 20151020
  Transmission Date: 20160304
  Serious: No
  Sender: FDA-Public Use
  Company Number: US-BAUSCH-BL-2015-017739

PATIENT
  Age: 36 Year
  Sex: Male
  Weight: 72.64 kg

DRUGS (3)
  1. BUDESONIDE NASAL SOLUTION [Concomitant]
     Indication: HYPERSENSITIVITY
     Dosage: TWICE DAILY IN EACH NOSTRIL
     Dates: start: 2015
  2. OLOPATADINE NASAL SPRAY [Concomitant]
     Indication: HYPERSENSITIVITY
     Dosage: TWICE DAILY IN EACH NOSTRIL
     Dates: start: 2015
  3. NEOMYCIN AND POLYMYXIN B SULFATES AND HYDROCORTISONE [Suspect]
     Active Substance: HYDROCORTISONE\NEOMYCIN SULFATE\POLYMYXIN B SULFATE
     Indication: EAR INFECTION
     Route: 001
     Dates: start: 20150712

REACTIONS (1)
  - Ear discomfort [Not Recovered/Not Resolved]

NARRATIVE: CASE EVENT DATE: 201507
